FAERS Safety Report 19453979 (Version 4)
Quarter: 2021Q3

REPORT INFORMATION
  Report Type: Report from Study
  Country: GB (occurrence: GB)
  Receive Date: 20210623
  Receipt Date: 20210817
  Transmission Date: 20211014
  Serious: Yes (Other)
  Sender: FDA-Public Use
  Company Number: NVSC2021GB019922

PATIENT
  Sex: Female

DRUGS (2)
  1. OMNITROPE [Suspect]
     Active Substance: SOMATROPIN
     Indication: SMALL FOR DATES BABY
  2. OMNITROPE [Suspect]
     Active Substance: SOMATROPIN
     Indication: GROWTH HORMONE DEFICIENCY
     Dosage: 0.8 MG, QD
     Route: 058
     Dates: start: 20210121

REACTIONS (13)
  - Mood altered [Unknown]
  - Insomnia [Unknown]
  - Fatigue [Unknown]
  - Headache [Unknown]
  - Eating disorder [Unknown]
  - Mood swings [Unknown]
  - Poor quality sleep [Unknown]
  - Syncope [Unknown]
  - Abdominal pain [Unknown]
  - Nervousness [Unknown]
  - Product dose omission issue [Unknown]
  - Device leakage [Unknown]
  - Injection site bruising [Unknown]
